FAERS Safety Report 7501893-1 (Version None)
Quarter: 2011Q2

REPORT INFORMATION
  Report Type: 
  Country: None (occurrence: None)
  Receive Date: 20110525
  Receipt Date: 20110509
  Transmission Date: 20111010
  Serious: Yes (Hospitalization)
  Sender: FDA-Public Use
  Company Number: DE-JNJFOC-20110509587

PATIENT
  Sex: Female
  Weight: 142 kg

DRUGS (17)
  1. TARGIN [Concomitant]
     Route: 065
  2. MORPHINE [Concomitant]
     Route: 065
  3. TAPENTADOL [Suspect]
     Indication: ARTHRALGIA
     Route: 065
     Dates: end: 20110217
  4. ANALGESICS [Concomitant]
     Route: 065
  5. MUSCLE RELAXANTS [Concomitant]
     Route: 065
  6. DULOXETINE HYDROCHLORIDE [Concomitant]
     Route: 065
  7. ANTIEMETICS [Concomitant]
     Route: 065
  8. ALL OTHER THERAPEUTIC PRODUCTS [Concomitant]
     Route: 065
  9. HYDROMORPHONE HCL [Concomitant]
     Route: 065
  10. TAPENTADOL [Suspect]
     Route: 065
     Dates: start: 20101105
  11. TAPENTADOL [Suspect]
     Route: 065
     Dates: start: 20101105
  12. TAPENTADOL [Suspect]
     Indication: BACK PAIN
     Route: 065
     Dates: end: 20110217
  13. TAPENTADOL [Suspect]
     Indication: PAIN
     Route: 065
     Dates: end: 20110217
  14. AMITRIPTYLINE HCL [Concomitant]
     Route: 065
  15. LAXATIVES [Concomitant]
     Route: 065
  16. TAPENTADOL [Suspect]
     Route: 065
     Dates: start: 20101105
  17. LYRICA [Concomitant]
     Route: 065

REACTIONS (1)
  - HYPERTENSION [None]
